FAERS Safety Report 4947566-0 (Version None)
Quarter: 2006Q1

REPORT INFORMATION
  Report Type: 
  Country: None (occurrence: None)
  Receive Date: 20060314
  Receipt Date: 20060301
  Transmission Date: 20060701
  Serious: Yes (Hospitalization, Other)
  Sender: FDA-Public Use
  Company Number: 2006031203

PATIENT
  Age: 58 Year
  Sex: Female
  Weight: 75 kg

DRUGS (5)
  1. SUTENT [Suspect]
     Indication: METASTATIC RENAL CELL CARCINOMA
     Dosage: 50 MG, (50 MG INTERVAL:DAILY), ORAL
     Route: 048
     Dates: start: 20060208
  2. GASTROSIL (METOCLOPRAMIDE HYDROCHLORIDE) [Concomitant]
  3. PANTOPRAZOLE SODIUM [Concomitant]
  4. NORVASC [Concomitant]
  5. METOHEXAL (METOPROLOL TARTRATE) [Concomitant]

REACTIONS (3)
  - DIZZINESS [None]
  - PAPILLOEDEMA [None]
  - VISION BLURRED [None]
